FAERS Safety Report 14342099 (Version 1)
Quarter: 2018Q1

REPORT INFORMATION
  Report Type: Spontaneous
  Country: FR (occurrence: FR)
  Receive Date: 20180102
  Receipt Date: 20180102
  Transmission Date: 20180509
  Serious: Yes (Other)
  Sender: FDA-Public Use
  Company Number: FR-GLAXOSMITHKLINE-FR2017198986

PATIENT
  Age: 1 Day
  Sex: Male
  Weight: 3.37 kg

DRUGS (3)
  1. KEPPRA [Suspect]
     Active Substance: LEVETIRACETAM
     Indication: EPILEPSY
     Dosage: 3000 MG, QD
     Route: 064
     Dates: start: 20161225, end: 20170911
  2. URBANYL [Suspect]
     Active Substance: CLOBAZAM
     Indication: EPILEPSY
     Dosage: 10 MG, QD
     Route: 064
     Dates: start: 20161225, end: 20170911
  3. LAMICTAL [Suspect]
     Active Substance: LAMOTRIGINE
     Indication: EPILEPSY
     Dosage: 300 MG, QD
     Route: 064
     Dates: start: 20161225, end: 20170911

REACTIONS (3)
  - Hypothermia [Recovered/Resolved]
  - Hypotonia [Recovered/Resolved]
  - Foetal exposure during pregnancy [Unknown]

NARRATIVE: CASE EVENT DATE: 20170912
